FAERS Safety Report 16335179 (Version 1)
Quarter: 2019Q2

REPORT INFORMATION
  Report Type: Spontaneous
  Country: DE (occurrence: DE)
  Receive Date: 20190521
  Receipt Date: 20190521
  Transmission Date: 20190711
  Serious: Yes (Disabling)
  Sender: FDA-Public Use
  Company Number: DE-AUROBINDO-AUR-APL-2019-028079

PATIENT

DRUGS (4)
  1. IBUPROFEN. [Suspect]
     Active Substance: IBUPROFEN
     Indication: PRODUCT USED FOR UNKNOWN INDICATION
     Dosage: UNK
     Route: 065
     Dates: start: 20190406, end: 20190409
  2. CIPRO 1A PHARMA [Suspect]
     Active Substance: CIPROFLOXACIN\CIPROFLOXACIN HYDROCHLORIDE
     Indication: URINARY TRACT INFECTION
     Dosage: 500 MILLIGRAM, TWO TIMES A DAY (500 MG, BID (1-0-1)
     Route: 048
     Dates: start: 20190312
  3. CIPROFLOXACIN RATIOPHARM [Suspect]
     Active Substance: CIPROFLOXACIN
     Indication: PROSTATITIS
     Dosage: 2 DOSAGE FORM, TWO TIMES A DAY (2 DF, BID)
     Route: 048
     Dates: start: 20190402
  4. CIPRO 1A PHARMA [Suspect]
     Active Substance: CIPROFLOXACIN\CIPROFLOXACIN HYDROCHLORIDE
     Indication: PROSTATITIS
     Dosage: 500 MILLIGRAM, TWO TIMES A DAY (500 MG, BID (1-0-1)
     Route: 048
     Dates: start: 20190319

REACTIONS (3)
  - Arthralgia [Recovering/Resolving]
  - Malaise [Not Recovered/Not Resolved]
  - Pain in extremity [Recovering/Resolving]

NARRATIVE: CASE EVENT DATE: 20190408
